FAERS Safety Report 5683435-9 (Version None)
Quarter: 2008Q1

REPORT INFORMATION
  Report Type: 
  Country: None (occurrence: None)
  Receive Date: 20080327
  Receipt Date: 20080320
  Transmission Date: 20080703
  Serious: Yes (Life-Threatening, Hospitalization, Disabling)
  Sender: FDA-Public Use
  Company Number: AU-GENENTECH-256455

PATIENT
  Sex: Female
  Weight: 80.3 kg

DRUGS (4)
  1. BEVACIZUMAB [Suspect]
     Indication: NON-SMALL CELL LUNG CANCER
     Dosage: 930 MG, Q3W
     Route: 042
     Dates: start: 20071213
  2. CARBOPLATIN [Suspect]
     Indication: NON-SMALL CELL LUNG CANCER
     Dosage: UNK, UNK
     Route: 042
     Dates: start: 20071213
  3. GEMCITABINE HCL [Suspect]
     Indication: NON-SMALL CELL LUNG CANCER
     Dosage: UNK, UNK
     Route: 042
     Dates: start: 20071213
  4. DIURETICS [Concomitant]
     Indication: OEDEMA
     Dosage: UNK, UNK
     Dates: start: 20080206

REACTIONS (1)
  - RENAL FAILURE ACUTE [None]
